FAERS Safety Report 5973836-3 (Version None)
Quarter: 2008Q4

REPORT INFORMATION
  Report Type: 
  Country: None (occurrence: None)
  Receive Date: 20081201
  Receipt Date: 20081117
  Transmission Date: 20090506
  Serious: Yes (Other)
  Sender: FDA-Public Use
  Company Number: DE-ROCHE-597597

PATIENT
  Age: 35 Year
  Sex: Male

DRUGS (4)
  1. RIBAVIRIN [Suspect]
     Route: 048
  2. CONSENSUS INTERFERON [Suspect]
     Route: 058
  3. CONSENSUS INTERFERON [Suspect]
     Route: 058
  4. ROFERON-A [Suspect]
     Dosage: DOSE : 6 MIO IU
     Route: 058

REACTIONS (2)
  - DEAFNESS NEUROSENSORY [None]
  - MENINGITIS PNEUMOCOCCAL [None]
